FAERS Safety Report 6956706-3 (Version None)
Quarter: 2010Q3

REPORT INFORMATION
  Report Type: 
  Country: None (occurrence: None)
  Receive Date: 20100830
  Receipt Date: 20100816
  Transmission Date: 20110219
  Serious: Yes (Other)
  Sender: FDA-Public Use
  Company Number: PHHY2010JP51489

PATIENT
  Age: 20 Year
  Sex: Male

DRUGS (2)
  1. GLEEVEC [Suspect]
     Indication: ACUTE LYMPHOCYTIC LEUKAEMIA
     Dosage: 600 MG,DAILY
     Dates: start: 20080801, end: 20090201
  2. GLEEVEC [Suspect]
     Dosage: 600 MG, DAILY
     Dates: start: 20090501, end: 20090801

REACTIONS (5)
  - DRUG RESISTANCE [None]
  - GENE MUTATION IDENTIFICATION TEST POSITIVE [None]
  - LEUKAEMIA RECURRENT [None]
  - NAUSEA [None]
  - STEM CELL TRANSPLANT [None]
